FAERS Safety Report 17876290 (Version 1)
Quarter: 2020Q2

REPORT INFORMATION
  Report Type: Spontaneous
  Country: US (occurrence: US)
  Receive Date: 20200609
  Receipt Date: 20200609
  Transmission Date: 20200714
  Serious: Yes (Hospitalization)
  Sender: FDA-Public Use
  Company Number: None

PATIENT
  Age: 82 Year
  Sex: Male

DRUGS (9)
  1. AMLODIPINE [Concomitant]
     Active Substance: AMLODIPINE BESYLATE
  2. LISINOPRIL TAB 10MG [Concomitant]
     Active Substance: LISINOPRIL
  3. FREESTYLE MIS LITE [Concomitant]
  4. EPOGEN [Suspect]
     Active Substance: ERYTHROPOIETIN
     Indication: HYPERKALAEMIA
     Dosage: ?          OTHER FREQUENCY:ONCE A MONTH;?
     Route: 058
     Dates: start: 20200430
  5. FUROSEMIDE TAB 40MG [Concomitant]
  6. NITROGLYCERN SUB 0.4MG [Concomitant]
  7. BREO ELLIPTA ING 100-25 [Concomitant]
  8. ALLOPURINOL TAB 100MG [Concomitant]
  9. ALLOPURINOL TAB 100MG [Concomitant]

REACTIONS (3)
  - Dialysis [None]
  - Therapy interrupted [None]
  - Fluid retention [None]

NARRATIVE: CASE EVENT DATE: 20200602
